FAERS Safety Report 6005933-0 (Version None)
Quarter: 2008Q4

REPORT INFORMATION
  Report Type: 
  Country: None (occurrence: None)
  Receive Date: 20081215
  Receipt Date: 20081202
  Transmission Date: 20090506
  Serious: Yes (Disabling)
  Sender: FDA-Public Use
  Company Number: 1000003106

PATIENT
  Age: 41 Year
  Sex: Male

DRUGS (1)
  1. ESCITALOPRAM [Suspect]
     Dosage: ORAL
     Route: 048
     Dates: end: 20080727

REACTIONS (3)
  - DYSKINESIA [None]
  - SPEECH DISORDER [None]
  - TOURETTE'S DISORDER [None]
